FAERS Safety Report 7795890-9 (Version None)
Quarter: 2011Q4

REPORT INFORMATION
  Report Type: 
  Country: None (occurrence: None)
  Receive Date: 20111004
  Receipt Date: 20110926
  Transmission Date: 20120403
  Serious: Yes (Death, Hospitalization, Other)
  Sender: FDA-Public Use
  Company Number: US-BAYER-201038552NA

PATIENT
  Age: 77 Year
  Sex: Female
  Weight: 60.65 kg

DRUGS (23)
  1. TRASYLOL [Suspect]
     Indication: CORONARY ARTERY BYPASS
     Dosage: 50 ML, Q1HR
     Route: 042
     Dates: start: 20040617, end: 20040617
  2. ACETYLSALICYLIC ACID SRT [Concomitant]
     Dosage: 81 MG, UNK
     Route: 048
  3. PLAVIX [Concomitant]
     Dosage: 75 MG, UNK
     Route: 048
  4. NORTRIPTYLINE HCL [Concomitant]
     Dosage: 25 MG, UNK
     Route: 048
  5. MUCOMYST [Concomitant]
     Dosage: 500 MG, UNK
     Route: 048
     Dates: start: 20040615, end: 20040616
  6. DOBUTREX [Concomitant]
     Dosage: UNK
     Route: 042
     Dates: start: 20040617, end: 20040628
  7. TRASYLOL [Suspect]
     Indication: MITRAL VALVE REPAIR
     Dosage: 1ML TEST DOSE
     Dates: start: 20040617, end: 20040617
  8. PANCURONIUM [Concomitant]
     Dosage: 15 MG, UNK
     Route: 042
     Dates: start: 20040617, end: 20040617
  9. PROTAMINE SULFATE [Concomitant]
     Dosage: 200 UNITS UNSPECIFIED
     Route: 042
     Dates: start: 20040617, end: 20040617
  10. LEVOTHYROXINE [Concomitant]
     Dosage: 0.025 UNLISTED UNITS
     Route: 048
     Dates: end: 20040616
  11. BIAXIN [Concomitant]
     Dosage: 1000 MG, UNK
     Route: 048
     Dates: start: 20040614, end: 20040616
  12. FORANE [Concomitant]
     Dosage: UNK
     Route: 055
     Dates: start: 20040617, end: 20040617
  13. TIAZAC [Concomitant]
     Dosage: 180 MG, UNK
     Route: 048
  14. FENTANYL [Concomitant]
     Dosage: 300 MCG
     Route: 042
     Dates: start: 20040617, end: 20040617
  15. CEFAZOLIN [Concomitant]
     Dosage: UNK
     Dates: start: 20040617, end: 20040617
  16. HEPARIN [Concomitant]
     Dosage: UNK
     Route: 042
     Dates: start: 20040617, end: 20040617
  17. TOPROL-XL [Concomitant]
     Dosage: 50 MG, UNK
     Route: 048
  18. PROPOFOL [Concomitant]
     Dosage: 500 MG, UNK
     Route: 042
     Dates: start: 20040617, end: 20040617
  19. RED BLOOD CELLS [Concomitant]
     Dosage: 5 U, UNK
     Route: 042
     Dates: start: 20040617, end: 20040617
  20. OPTIRAY 160 [Concomitant]
     Dosage: 105 ML, UNK
     Dates: start: 20040615
  21. VERSED [Concomitant]
     Dosage: 5 MG, UNK
     Route: 042
     Dates: start: 20040617, end: 20040617
  22. PRIMACOR [Concomitant]
     Dosage: UNK
     Route: 042
     Dates: start: 20040617, end: 20040618
  23. CARDENE [Concomitant]
     Dosage: UNK
     Route: 042
     Dates: start: 20040617, end: 20040617

REACTIONS (9)
  - RENAL FAILURE [None]
  - ANXIETY [None]
  - NERVOUSNESS [None]
  - MULTI-ORGAN FAILURE [None]
  - SEPSIS [None]
  - EMOTIONAL DISTRESS [None]
  - DEPRESSION [None]
  - FEAR OF DEATH [None]
  - INJURY [None]
